FAERS Safety Report 5405426-5 (Version None)
Quarter: 2007Q3

REPORT INFORMATION
  Report Type: 
  Country: None (occurrence: None)
  Receive Date: 20070803
  Receipt Date: 20070724
  Transmission Date: 20080115
  Serious: Yes (Other)
  Sender: FDA-Public Use
  Company Number: US-PFIZER INC-2007061354

PATIENT
  Sex: Male
  Weight: 88.5 kg

DRUGS (7)
  1. GLIBENCLAMIDE TABLET [Suspect]
     Indication: BLOOD GLUCOSE
  2. EXUBERA [Suspect]
     Indication: BLOOD GLUCOSE
     Route: 055
  3. ACTOS [Concomitant]
     Indication: BLOOD GLUCOSE
  4. COZAAR [Concomitant]
     Indication: HYPERTENSION
  5. CRESTOR [Concomitant]
     Indication: BLOOD CHOLESTEROL
  6. TAMSULOSIN HCL [Concomitant]
  7. GLUCOPHAGE [Concomitant]

REACTIONS (2)
  - BLOOD GLUCOSE INCREASED [None]
  - PHARMACEUTICAL PRODUCT COMPLAINT [None]
